FAERS Safety Report 16725486 (Version 1)
Quarter: 2019Q3

REPORT INFORMATION
  Report Type: Spontaneous
  Country: US (occurrence: US)
  Receive Date: 20190820
  Receipt Date: 20190820
  Transmission Date: 20191005
  Serious: Yes (Hospitalization, Other)
  Sender: FDA-Public Use
  Company Number: None

PATIENT

DRUGS (1)
  1. HEPARIN [Suspect]
     Active Substance: HEPARIN SODIUM
     Indication: ACUTE CORONARY SYNDROME
     Route: 042
     Dates: start: 20190820, end: 20190820

REACTIONS (3)
  - Treatment failure [None]
  - Vascular stent thrombosis [None]
  - Product quality issue [None]

NARRATIVE: CASE EVENT DATE: 20190820
